FAERS Safety Report 15738984 (Version 1)
Quarter: 2018Q4

REPORT INFORMATION
  Report Type: Spontaneous
  Country: CO (occurrence: CO)
  Receive Date: 20181219
  Receipt Date: 20181219
  Transmission Date: 20190205
  Serious: Yes (Hospitalization)
  Sender: FDA-Public Use
  Company Number: CO-BAYER-2018-228177

PATIENT
  Age: 29 Year
  Sex: Female

DRUGS (1)
  1. MIRENA [Suspect]
     Active Substance: LEVONORGESTREL
     Dosage: 20 MCG/24HR, CONT
     Route: 015
     Dates: start: 201810, end: 201811

REACTIONS (3)
  - Appendicitis [Recovering/Resolving]
  - Salpingitis [None]
  - Peritonitis [Recovering/Resolving]

NARRATIVE: CASE EVENT DATE: 201811
